FAERS Safety Report 9310819 (Version 1)
Quarter: 2013Q2

REPORT INFORMATION
  Report Type: Spontaneous
  Country: US (occurrence: None)
  Receive Date: 20130523
  Receipt Date: 20130523
  Transmission Date: 20140414
  Serious: Yes (Death)
  Sender: FDA-Public Use
  Company Number: None

PATIENT
  Age: 65 Year
  Sex: Female

DRUGS (1)
  1. POMALYST 4MG CELGENE [Suspect]
     Indication: PLASMA CELL MYELOMA
     Dosage: 1 CAPSULE DAILY ORAL
     Route: 048
     Dates: start: 20130503, end: 20130519

REACTIONS (1)
  - Death [None]
